FAERS Safety Report 13154188 (Version 6)
Quarter: 2019Q1

REPORT INFORMATION
  Report Type: Spontaneous
  Country: CA (occurrence: CA)
  Receive Date: 20170126
  Receipt Date: 20190129
  Transmission Date: 20190417
  Serious: Yes (Other)
  Sender: FDA-Public Use
  Company Number: CA-PFIZER INC-2016360708

PATIENT
  Age: 60 Year
  Sex: Female

DRUGS (12)
  1. XELJANZ [Suspect]
     Active Substance: TOFACITINIB CITRATE
     Dosage: 5 MG, TWICE DAILY
     Route: 048
     Dates: start: 20160721, end: 2016
  2. NAPROSYN [Concomitant]
     Active Substance: NAPROXEN
     Dosage: UNK
     Route: 065
  3. CYMBALTA [Concomitant]
     Active Substance: DULOXETINE HYDROCHLORIDE
     Dosage: UNK
     Route: 065
  4. CELEBREX [Concomitant]
     Active Substance: CELECOXIB
     Dosage: 200 MG, ONCE A DAY
  5. METHOTREXATE. [Concomitant]
     Active Substance: METHOTREXATE
     Indication: RHEUMATOID ARTHRITIS
     Dosage: 25 MG, WEEKLY
     Route: 048
     Dates: start: 20160308
  6. PREDNISONE. [Concomitant]
     Active Substance: PREDNISONE
     Indication: RHEUMATOID ARTHRITIS
     Dosage: 5 MG, DAILY
  7. XELJANZ [Suspect]
     Active Substance: TOFACITINIB CITRATE
     Indication: RHEUMATOID ARTHRITIS
     Dosage: 5 MG, TWICE DAILY
     Route: 048
     Dates: start: 20160617, end: 20160716
  8. GABAPENTIN. [Concomitant]
     Active Substance: GABAPENTIN
     Indication: RHEUMATOID ARTHRITIS
     Dosage: UNK, DAILY
     Route: 048
  9. MULTIVITAMINS [Concomitant]
     Active Substance: VITAMINS
     Dosage: UNK
     Route: 065
  10. XELJANZ [Suspect]
     Active Substance: TOFACITINIB CITRATE
     Dosage: 5 MG, TWICE DAILY
     Route: 048
     Dates: start: 2016, end: 2017
  11. XELJANZ [Suspect]
     Active Substance: TOFACITINIB CITRATE
     Dosage: 5 MG, TWICE DAILY
     Route: 048
     Dates: start: 2017
  12. ACTONEL [Concomitant]
     Active Substance: RISEDRONATE SODIUM
     Dosage: UNK

REACTIONS (24)
  - Drug effect incomplete [Not Recovered/Not Resolved]
  - Headache [Recovered/Resolved]
  - Arthralgia [Not Recovered/Not Resolved]
  - Nasopharyngitis [Unknown]
  - Product dose omission [Unknown]
  - Multiple fractures [Unknown]
  - Condition aggravated [Not Recovered/Not Resolved]
  - Sinusitis [Unknown]
  - Somnolence [Unknown]
  - Cellulitis [Unknown]
  - Rash vesicular [Recovered/Resolved]
  - Bursitis [Unknown]
  - Acne [Unknown]
  - Fatigue [Unknown]
  - Foot fracture [Unknown]
  - Coagulopathy [Unknown]
  - Weight increased [Not Recovered/Not Resolved]
  - Musculoskeletal discomfort [Not Recovered/Not Resolved]
  - Carpal tunnel syndrome [Not Recovered/Not Resolved]
  - Skin disorder [Not Recovered/Not Resolved]
  - Upper limb fracture [Unknown]
  - Croup infectious [Unknown]
  - Scar [Unknown]
  - Nail disorder [Recovered/Resolved]

NARRATIVE: CASE EVENT DATE: 2016
